FAERS Safety Report 18326650 (Version 1)
Quarter: 2020Q3

REPORT INFORMATION
  Report Type: Spontaneous
  Country: US (occurrence: US)
  Receive Date: 20200929
  Receipt Date: 20200929
  Transmission Date: 20201103
  Serious: Yes (Hospitalization, Other)
  Sender: FDA-Public Use
  Company Number: US-BRISTOL-MYERS SQUIBB COMPANY-BMS-2020-078889

PATIENT
  Age: 97 Year
  Sex: Female
  Weight: 56.7 kg

DRUGS (3)
  1. METOPROLOL TARTRATE. [Suspect]
     Active Substance: METOPROLOL TARTRATE
     Indication: ATRIAL FIBRILLATION
     Dosage: 12.5 MILLIGRAM, QD
     Route: 065
     Dates: start: 201709
  2. ELIQUIS [Suspect]
     Active Substance: APIXABAN
     Indication: CEREBROVASCULAR ACCIDENT PROPHYLAXIS
     Dosage: 20 MILLIGRAM, BID
     Route: 065
     Dates: start: 2017
  3. VYNDAMAX [Suspect]
     Active Substance: TAFAMIDIS
     Indication: CARDIAC AMYLOIDOSIS
     Dosage: 61 MILLIGRAM, QD
     Route: 048
     Dates: start: 202009

REACTIONS (7)
  - Hospitalisation [Unknown]
  - Heart rate increased [Unknown]
  - Blood pressure decreased [Unknown]
  - Pleural effusion [Unknown]
  - Atrial fibrillation [Unknown]
  - Heart rate decreased [Unknown]
  - Prescribed overdose [Unknown]

NARRATIVE: CASE EVENT DATE: 202009
